FAERS Safety Report 6687531-9 (Version None)
Quarter: 2010Q2

REPORT INFORMATION
  Report Type: 
  Country: None (occurrence: None)
  Receive Date: 20100419
  Receipt Date: 20090915
  Transmission Date: 20101027
  Serious: No
  Sender: FDA-Public Use
  Company Number: US-ABBOTT-09P-163-0598280-00

PATIENT
  Age: 10 Year
  Sex: Female
  Weight: 45.4 kg

DRUGS (1)
  1. LUPRON DEPOT-PED [Suspect]
     Indication: PRECOCIOUS PUBERTY
     Dosage: UNKNOWN DOSE
     Route: 050
     Dates: start: 20090301

REACTIONS (2)
  - MUSCLE SPASMS [None]
  - VAGINAL DISCHARGE [None]
